FAERS Safety Report 5191560-4 (Version None)
Quarter: 2006Q4

REPORT INFORMATION
  Report Type: 
  Country: None (occurrence: None)
  Receive Date: 20061220
  Receipt Date: 20061220
  Transmission Date: 20070319
  Serious: Yes (Other)
  Sender: FDA-Public Use
  Company Number: None

PATIENT
  Sex: Female
  Weight: 77.1115 kg

DRUGS (2)
  1. LIPITOR [Suspect]
     Indication: LOW DENSITY LIPOPROTEIN INCREASED
     Dosage: 20 MG.  3X WEEKLY  PO
     Route: 048
     Dates: start: 20050901, end: 20060901
  2. CRESTOR [Suspect]
     Dosage: 10 MG. 3X WEEKLY PO
     Route: 048
     Dates: start: 20061001, end: 20061101

REACTIONS (3)
  - CONSTIPATION [None]
  - DISBACTERIOSIS [None]
  - INTESTINAL OBSTRUCTION [None]
